FAERS Safety Report 4710671-8 (Version None)
Quarter: 2005Q3

REPORT INFORMATION
  Report Type: 
  Country: None (occurrence: None)
  Receive Date: 20050707
  Receipt Date: 20050621
  Transmission Date: 20060218
  Serious: Yes (Hospitalization)
  Sender: FDA-Public Use
  Company Number: FR_050606676

PATIENT
  Age: 76 Year
  Sex: Male
  Weight: 79 kg

DRUGS (6)
  1. HUMALOG MIX 50/50 [Suspect]
     Indication: DIABETES MELLITUS
     Dosage: 31 IU DAY
  2. HUMALOG MIX 75/25 [Suspect]
     Indication: DIABETES MELLITUS
     Dosage: 8 IU DAY
  3. LASILIX (FUROSEMIDE / 00032601/) [Concomitant]
  4. AMLODIPINE BESYLATE [Concomitant]
  5. HYPERIUM (RILMENIDINE) [Concomitant]
  6. FOZITEC (FOSINOPRIL /00915301/) [Concomitant]

REACTIONS (3)
  - ASTHENIA [None]
  - HYPOGLYCAEMIA [None]
  - MALAISE [None]
